FAERS Safety Report 6673222-7 (Version None)
Quarter: 2010Q2

REPORT INFORMATION
  Report Type: 
  Country: None (occurrence: None)
  Receive Date: 20100408
  Receipt Date: 20100405
  Transmission Date: 20101027
  Serious: Yes (Disabling)
  Sender: FDA-Public Use
  Company Number: JP-ASTRAZENECA-2010SE14923

PATIENT
  Age: 40 Year
  Sex: Female

DRUGS (1)
  1. MARCAINE [Suspect]
     Dosage: DOSE UNKNOWN
     Route: 029
     Dates: start: 20090301, end: 20090301

REACTIONS (1)
  - CAUDA EQUINA SYNDROME [None]
